FAERS Safety Report 25803113 (Version 1)
Quarter: 2025Q3

REPORT INFORMATION
  Report Type: Spontaneous
  Country: US (occurrence: None)
  Receive Date: 20250915
  Receipt Date: 20250915
  Transmission Date: 20251021
  Serious: Yes (Other)
  Sender: FDA-CTU
  Company Number: None

PATIENT
  Age: 43 Year
  Sex: Female
  Weight: 63 kg

DRUGS (1)
  1. ALBENDAZOLE [Suspect]
     Active Substance: ALBENDAZOLE
     Indication: Enterobiasis
     Route: 048
     Dates: start: 20250805, end: 20250831

REACTIONS (2)
  - Hepatic enzyme increased [None]
  - Blood bilirubin increased [None]

NARRATIVE: CASE EVENT DATE: 20250902
